FAERS Safety Report 12365228 (Version 1)
Quarter: 2016Q2

REPORT INFORMATION
  Report Type: Spontaneous
  Country: US (occurrence: US)
  Receive Date: 20160513
  Receipt Date: 20160513
  Transmission Date: 20160815
  Serious: No
  Sender: FDA-Public Use
  Company Number: US-WOCKHARDT USA, LLC-1052144

PATIENT
  Age: 69 Year
  Sex: Male

DRUGS (10)
  1. ENTACAPONE. [Suspect]
     Active Substance: ENTACAPONE
     Indication: NERVOUS SYSTEM DISORDER
     Route: 048
  2. VITAMIN C [Concomitant]
     Active Substance: ASCORBIC ACID
  3. COD LIVER OIL [Concomitant]
     Active Substance: COD LIVER OIL
  4. CLONAZEPAM. [Concomitant]
     Active Substance: CLONAZEPAM
  5. LEXAPRO [Concomitant]
     Active Substance: ESCITALOPRAM OXALATE
  6. REMERON [Concomitant]
     Active Substance: MIRTAZAPINE
  7. COENZYME Q10 [Concomitant]
     Active Substance: UBIDECARENONE
  8. VITAMIN D3 [Concomitant]
     Active Substance: CHOLECALCIFEROL
  9. OMEGA 3 FATTY ACIDS [Concomitant]
     Active Substance: OMEGA-3 FATTY ACIDS
  10. VITAMIN B12 [Concomitant]
     Active Substance: CYANOCOBALAMIN

REACTIONS (4)
  - Abdominal pain [Not Recovered/Not Resolved]
  - Back pain [None]
  - Weight decreased [None]
  - Abdominal pain upper [None]
